FAERS Safety Report 8611355-6 (Version None)
Quarter: 2012Q3

REPORT INFORMATION
  Report Type: 
  Country: None (occurrence: None)
  Receive Date: 20120807
  Receipt Date: 20120726
  Transmission Date: 20120928
  Serious: Yes (Other)
  Sender: FDA-Public Use
  Company Number: DSA_57893_2012

PATIENT
  Sex: Male

DRUGS (6)
  1. ASPIRIN [Concomitant]
  2. LEVOTHYROXINE SODIUM [Concomitant]
  3. ELIDEL [Suspect]
     Indication: ECZEMA
     Dosage: (DF TOPICAL)
     Route: 061
  4. TRIAMCINOLONE ACETONIDE [Concomitant]
  5. VIAGRA [Concomitant]
  6. VALTREX [Concomitant]

REACTIONS (18)
  - FOLLICULITIS [None]
  - HEPATIC STEATOSIS [None]
  - INTERVERTEBRAL DISC DEGENERATION [None]
  - LYMPHOMA [None]
  - NEUROPATHY PERIPHERAL [None]
  - POST PROCEDURAL HYPOTHYROIDISM [None]
  - CONJUNCTIVITIS [None]
  - PULMONARY VALVE INCOMPETENCE [None]
  - ARTERIOSCLEROSIS CORONARY ARTERY [None]
  - DIVERTICULUM [None]
  - LUNG NEOPLASM [None]
  - ORAL HERPES [None]
  - COLONIC POLYP [None]
  - LARYNGITIS [None]
  - PHARYNGITIS [None]
  - AORTIC DILATATION [None]
  - THYROID CANCER [None]
  - HYPOCALCAEMIA [None]
